FAERS Safety Report 4808991-1 (Version None)
Quarter: 2005Q4

REPORT INFORMATION
  Report Type: 
  Country: None (occurrence: None)
  Receive Date: 20051021
  Receipt Date: 20011106
  Transmission Date: 20060501
  Serious: No
  Sender: FDA-Public Use
  Company Number: US_011177458

PATIENT
  Age: 58 Year
  Sex: Female

DRUGS (4)
  1. ZYPREXA [Suspect]
     Indication: PSYCHOTIC DISORDER
     Dosage: 5 MG/DAY
     Route: 048
     Dates: start: 20010823, end: 20010915
  2. AKINETON [Concomitant]
  3. DIAZEPAM [Concomitant]
  4. LENDORM [Concomitant]

REACTIONS (1)
  - WHITE BLOOD CELL COUNT DECREASED [None]
